FAERS Safety Report 6706905-0 (Version None)
Quarter: 2010Q2

REPORT INFORMATION
  Report Type: 
  Country: None (occurrence: None)
  Receive Date: 20100503
  Receipt Date: 20100422
  Transmission Date: 20101027
  Serious: Yes (Hospitalization)
  Sender: FDA-Public Use
  Company Number: US-JNJFOC-20100406861

PATIENT
  Sex: Female
  Weight: 27.8 kg

DRUGS (2)
  1. INFLIXIMAB [Suspect]
     Indication: CROHN'S DISEASE
     Route: 042
  2. 5-ASA [Concomitant]
     Route: 048

REACTIONS (3)
  - CROHN'S DISEASE [None]
  - RECTAL ABSCESS [None]
  - VULVAL ABSCESS [None]
